FAERS Safety Report 4846390-7 (Version None)
Quarter: 2005Q4

REPORT INFORMATION
  Report Type: 
  Country: None (occurrence: None)
  Receive Date: 20051128
  Receipt Date: 20051115
  Transmission Date: 20060501
  Serious: Yes (Hospitalization)
  Sender: FDA-Public Use
  Company Number: IMP_1930_2005

PATIENT
  Age: 30 Year
  Sex: Male

DRUGS (1)
  1. BUPROPION HCL [Suspect]
     Dosage: DF ONCE PO
     Route: 048

REACTIONS (10)
  - AGITATION [None]
  - BLOOD GLUCOSE INCREASED [None]
  - CHOREOATHETOSIS [None]
  - DISORIENTATION [None]
  - ELECTROCARDIOGRAM QT PROLONGED [None]
  - HALLUCINATION [None]
  - HEART RATE INCREASED [None]
  - OVERDOSE [None]
  - RESPIRATORY RATE INCREASED [None]
  - SINUS TACHYCARDIA [None]
